FAERS Safety Report 8798883 (Version 1)
Quarter: 2012Q4

REPORT INFORMATION
  Report Type: Spontaneous
  Country: US (occurrence: None)
  Receive Date: 20120913
  Receipt Date: 20120913
  Transmission Date: 20130627
  Serious: Yes (Other)
  Sender: FDA-Public Use
  Company Number: B0828461A

PATIENT
  Age: 65 Year
  Sex: Female

DRUGS (2)
  1. ORLISTAT [Suspect]
     Indication: WEIGHT CONTROL
  2. THYROXINE SODIUM [Suspect]
     Indication: HYPOTHYROIDISM

REACTIONS (4)
  - Hypothyroidism [None]
  - Syncope [None]
  - Sinus bradycardia [None]
  - Atrioventricular block first degree [None]
